FAERS Safety Report 5740728-4 (Version None)
Quarter: 2008Q2

REPORT INFORMATION
  Report Type: 
  Country: None (occurrence: None)
  Receive Date: 20080516
  Receipt Date: 20080507
  Transmission Date: 20081010
  Serious: Yes (Death, Life-Threatening, Hospitalization, Other)
  Sender: FDA-Public Use
  Company Number: US-PFIZER INC-2003118541

PATIENT
  Sex: Male
  Weight: 81.6 kg

DRUGS (5)
  1. LIPITOR [Suspect]
     Indication: PROPHYLAXIS
     Dosage: TEXT:DAILY
     Route: 048
  2. CELEBREX [Suspect]
     Indication: PAIN
     Route: 048
     Dates: start: 20010101, end: 20010920
  3. ASPIRIN [Concomitant]
     Route: 065
  4. ANTIBIOTICS [Concomitant]
     Route: 065
  5. PLAVIX [Concomitant]
     Route: 065

REACTIONS (33)
  - ANGER [None]
  - APPLICATION SITE PUSTULES [None]
  - ARTERIAL OCCLUSIVE DISEASE [None]
  - BODY TEMPERATURE INCREASED [None]
  - CALCULUS BLADDER [None]
  - CARDIAC ARREST [None]
  - CHEST DISCOMFORT [None]
  - CORONARY ARTERY STENOSIS [None]
  - DECREASED APPETITE [None]
  - DELIRIUM [None]
  - DEPRESSED MOOD [None]
  - DIARRHOEA [None]
  - DRUG INEFFECTIVE [None]
  - ENCEPHALITIS [None]
  - ENCEPHALITIS TOXIC [None]
  - GASTROINTESTINAL HAEMORRHAGE [None]
  - HAEMORRHAGE [None]
  - HIP SURGERY [None]
  - INFECTION [None]
  - MALAISE [None]
  - MELAENA [None]
  - MENTAL STATUS CHANGES [None]
  - MOVEMENT DISORDER [None]
  - PAIN [None]
  - PERIPHERAL VASCULAR DISORDER [None]
  - PNEUMONIA [None]
  - PROCEDURAL PAIN [None]
  - RENAL FAILURE ACUTE [None]
  - RESPIRATORY FAILURE [None]
  - SPEECH DISORDER [None]
  - STAPHYLOCOCCAL BACTERAEMIA [None]
  - THROMBOSIS [None]
  - WHITE BLOOD CELL COUNT INCREASED [None]
